FAERS Safety Report 5695723-0 (Version None)
Quarter: 2008Q2

REPORT INFORMATION
  Report Type: 
  Country: None (occurrence: None)
  Receive Date: 20080403
  Receipt Date: 20080325
  Transmission Date: 20081010
  Serious: Yes (Other)
  Sender: FDA-Public Use
  Company Number: 2008007467

PATIENT
  Sex: Female

DRUGS (1)
  1. TUCKS HC [Suspect]
     Indication: PRURITUS
     Dosage: AS NEEDED, TOPICAL
     Route: 061
     Dates: start: 20000101

REACTIONS (4)
  - ANORECTAL DISCOMFORT [None]
  - PAINFUL DEFAECATION [None]
  - PHARMACEUTICAL PRODUCT COMPLAINT [None]
  - SWELLING [None]
